FAERS Safety Report 9095039 (Version 1)
Quarter: 2013Q1

REPORT INFORMATION
  Report Type: Spontaneous
  Country: BR (occurrence: BR)
  Receive Date: 20130201
  Receipt Date: 20130201
  Transmission Date: 20140127
  Serious: Yes (Death)
  Sender: FDA-Public Use
  Company Number: BR-ELI_LILLY_AND_COMPANY-BR201301007526

PATIENT
  Sex: Female
  Weight: 57 kg

DRUGS (1)
  1. FORTEO [Suspect]
     Indication: OSTEOPOROSIS
     Dosage: 20 UG, QD
     Route: 058
     Dates: start: 20121212, end: 20130118

REACTIONS (6)
  - Hypovolaemic shock [Fatal]
  - Diabetes mellitus [Fatal]
  - Aortic aneurysm [Fatal]
  - Hypertension [Fatal]
  - Pain [Not Recovered/Not Resolved]
  - Feeling abnormal [Unknown]
